FAERS Safety Report 9298789 (Version 1)
Quarter: 2013Q2

REPORT INFORMATION
  Report Type: Spontaneous
  Country: US (occurrence: US)
  Receive Date: 20130520
  Receipt Date: 20130520
  Transmission Date: 20140414
  Serious: Yes (Hospitalization)
  Sender: FDA-Public Use
  Company Number: US-PFIZER INC-2013152699

PATIENT
  Age: 66 Year
  Sex: Female
  Weight: 73.47 kg

DRUGS (10)
  1. LYRICA [Suspect]
     Indication: FIBROMYALGIA
     Dosage: 150 MG, 3X/DAY
  2. HYDROCODONE W/ACETAMINOPHEN [Suspect]
     Indication: PAIN
     Dosage: 10/325 MG, 6X/DAY
  3. ENALAPRIL [Concomitant]
     Indication: HYPERTENSION
     Dosage: 20 MG, 1X/DAY
  4. AMILORIDE W/HYDROCHLOROTHIAZIDE [Concomitant]
     Indication: HYPERTENSION
     Dosage: 5/50 MG, 1X/DAY
  5. CLONAZEPAM [Concomitant]
     Indication: SLEEP DISORDER
     Dosage: 0.5 MG, AS NEEDED
  6. SIMVASTATIN [Concomitant]
     Indication: BLOOD CHOLESTEROL ABNORMAL
     Dosage: 40 MG, 1X/DAY
  7. PROMETHAZINE [Concomitant]
     Indication: HYPERSENSITIVITY
     Dosage: 12.5 MG, 2X/DAY
  8. PAROXETINE [Concomitant]
     Indication: DEPRESSION
     Dosage: 30 MG, 1X/DAY
  9. DIAZEPAM [Concomitant]
     Indication: PANIC ATTACK
     Dosage: 5 MG, AS NEEDED
  10. DIAZEPAM [Concomitant]
     Indication: STRESS

REACTIONS (2)
  - Pneumonia [Unknown]
  - Drug ineffective [Unknown]
